FAERS Safety Report 8279313-1 (Version None)
Quarter: 2012Q2

REPORT INFORMATION
  Report Type: 
  Country: None (occurrence: None)
  Receive Date: 20120412
  Receipt Date: 20110920
  Transmission Date: 20120825
  Serious: No
  Sender: FDA-Public Use
  Company Number: US-ASTRAZENECA-2011SE50203

PATIENT
  Age: 48 Year
  Sex: Female
  Weight: 52.2 kg

DRUGS (3)
  1. MACROBID [Concomitant]
     Indication: CYSTITIS
  2. ERYTHROMYCIN [Concomitant]
     Indication: ENDODONTIC PROCEDURE
  3. NEXIUM [Suspect]
     Indication: GASTROOESOPHAGEAL REFLUX DISEASE
     Route: 048
     Dates: start: 20110809

REACTIONS (6)
  - NAUSEA [None]
  - GASTRIC MUCOSA ERYTHEMA [None]
  - DRUG INEFFECTIVE [None]
  - OROPHARYNGEAL PAIN [None]
  - ERUCTATION [None]
  - DECREASED APPETITE [None]
